FAERS Safety Report 16073696 (Version 2)
Quarter: 2019Q1

REPORT INFORMATION
  Report Type: Report from Study
  Country: None (occurrence: NL)
  Receive Date: 20190314
  Receipt Date: 20190319
  Transmission Date: 20190418
  Serious: Yes (Death, Other)
  Sender: FDA-Public Use
  Company Number: NL-ABBVIE-19S-114-2695450-00

PATIENT
  Sex: Male

DRUGS (1)
  1. DUODOPA [Suspect]
     Active Substance: CARBIDOPA\LEVODOPA
     Indication: PARKINSON^S DISEASE
     Route: 050
     Dates: start: 20140211

REACTIONS (8)
  - Fall [Unknown]
  - Device dislocation [Not Recovered/Not Resolved]
  - Freezing phenomenon [Recovered/Resolved]
  - General physical health deterioration [Not Recovered/Not Resolved]
  - Unresponsive to stimuli [Recovered/Resolved]
  - Death [Fatal]
  - Loss of consciousness [Recovered/Resolved]
  - Hip fracture [Not Recovered/Not Resolved]
